FAERS Safety Report 7834141-3 (Version None)
Quarter: 2011Q4

REPORT INFORMATION
  Report Type: 
  Country: None (occurrence: None)
  Receive Date: 20111024
  Receipt Date: 20111012
  Transmission Date: 20120403
  Serious: Yes (Other)
  Sender: FDA-Public Use
  Company Number: PHHY2011DE56417

PATIENT

DRUGS (2)
  1. CANDESARTAN CILEXETIL [Concomitant]
     Indication: HYPERTENSION
  2. RASILEZ [Suspect]
     Indication: HYPERTENSION

REACTIONS (5)
  - RENAL FAILURE ACUTE [None]
  - GLOMERULAR FILTRATION RATE DECREASED [None]
  - ACIDOSIS [None]
  - HYPERKALAEMIA [None]
  - BLOOD CREATININE INCREASED [None]
